FAERS Safety Report 8566137-0 (Version None)
Quarter: 2012Q3

REPORT INFORMATION
  Report Type: 
  Country: None (occurrence: None)
  Receive Date: 20120803
  Receipt Date: 20110902
  Transmission Date: 20120928
  Serious: No
  Sender: FDA-Public Use
  Company Number: US-ABBOTT-11P-163-0851123-00

PATIENT
  Sex: Male

DRUGS (2)
  1. NIASPAN [Suspect]
     Indication: PRODUCT USED FOR UNKNOWN INDICATION
     Dosage: 2000 MG AT SUPPER + 2000 MG AT BEDTIME
     Dates: start: 20110831
  2. METFORMIN HYDROCHLORIDE [Suspect]
     Indication: PRODUCT USED FOR UNKNOWN INDICATION

REACTIONS (5)
  - OVERDOSE [None]
  - DYSPEPSIA [None]
  - PRURITUS [None]
  - DRUG DISPENSING ERROR [None]
  - SKIN BURNING SENSATION [None]
